FAERS Safety Report 7234515-8 (Version None)
Quarter: 2011Q1

REPORT INFORMATION
  Report Type: 
  Country: None (occurrence: None)
  Receive Date: 20110119
  Receipt Date: 20110117
  Transmission Date: 20110831
  Serious: Yes (Life-Threatening, Other)
  Sender: FDA-Public Use
  Company Number: GB-ELI_LILLY_AND_COMPANY-GB201101003749

PATIENT
  Age: 45 Year
  Sex: Male
  Weight: 84 kg

DRUGS (2)
  1. HUMULIN R [Suspect]
     Dates: start: 20110111
  2. OLANZAPINE [Concomitant]
     Dates: start: 20101220, end: 20101227

REACTIONS (1)
  - HYPOVENTILATION [None]
